FAERS Safety Report 10748365 (Version 1)
Quarter: 2015Q1

REPORT INFORMATION
  Report Type: Spontaneous
  Country: CA (occurrence: CA)
  Receive Date: 20150129
  Receipt Date: 20150129
  Transmission Date: 20150721
  Serious: Yes (Other)
  Sender: FDA-Public Use
  Company Number: CA-PFIZER INC-2015029972

PATIENT
  Age: 72 Year
  Sex: Male

DRUGS (2)
  1. GD-LATANOPROST [Suspect]
     Active Substance: LATANOPROST
     Dosage: UNK
     Dates: start: 201305
  2. XALACOM [Suspect]
     Active Substance: LATANOPROST\TIMOLOL MALEATE
     Dosage: UNK
     Dates: start: 2006, end: 201305

REACTIONS (1)
  - Blood potassium increased [Not Recovered/Not Resolved]
